FAERS Safety Report 15263368 (Version 1)
Quarter: 2018Q3

REPORT INFORMATION
  Report Type: Spontaneous
  Country: FR (occurrence: FR)
  Receive Date: 20180810
  Receipt Date: 20180810
  Transmission Date: 20181010
  Serious: Yes (Hospitalization)
  Sender: FDA-Public Use
  Company Number: FR-ASTRAZENECA-2018SF01734

PATIENT
  Age: 22 Year
  Sex: Male
  Weight: 68 kg

DRUGS (4)
  1. ESOMEPRAZOLE [Suspect]
     Active Substance: ESOMEPRAZOLE
     Indication: PROPHYLAXIS AGAINST GASTROINTESTINAL ULCER
     Route: 048
     Dates: start: 20180626, end: 20180630
  2. BOTULINUM TOXIN TYPE A [Suspect]
     Active Substance: BOTULINUM TOXIN TYPE A
     Indication: TORTICOLLIS
     Dosage: 1.0DF ONCE/SINGLE ADMINISTRATION
     Route: 011
     Dates: start: 20180615, end: 20180615
  3. IOMERON [Suspect]
     Active Substance: IOMEPROL
     Indication: SCAN WITH CONTRAST
     Dosage: 1.0DF ONCE/SINGLE ADMINISTRATION
     Route: 042
     Dates: start: 20180627, end: 20180627
  4. MINIRIN [Concomitant]
     Active Substance: DESMOPRESSIN ACETATE
     Indication: DIABETES INSIPIDUS
     Dosage: 120UG/INHAL DAILY
     Route: 048
     Dates: start: 20180625

REACTIONS (2)
  - Dermatitis bullous [Recovered/Resolved]
  - Toxic skin eruption [Recovered/Resolved]

NARRATIVE: CASE EVENT DATE: 20180628
